FAERS Safety Report 18361259 (Version 9)
Quarter: 2024Q2

REPORT INFORMATION
  Report Type: Spontaneous
  Country: IN (occurrence: IN)
  Receive Date: 20201008
  Receipt Date: 20240502
  Transmission Date: 20240715
  Serious: Yes (Other)
  Sender: FDA-Public Use
  Company Number: IN-PFIZER INC-2019105859

PATIENT
  Age: 45 Year
  Sex: Male
  Weight: 80.4 kg

DRUGS (10)
  1. CRIZOTINIB [Suspect]
     Active Substance: CRIZOTINIB
     Indication: Lung cancer metastatic
     Dosage: 250 MG, 2X/DAY
     Route: 048
     Dates: start: 20170919
  2. CRIZOTINIB [Suspect]
     Active Substance: CRIZOTINIB
     Dosage: 250 MG, 2X/DAY
     Route: 048
     Dates: start: 20170923, end: 20210530
  3. LEVETIRACETAM [Concomitant]
     Active Substance: LEVETIRACETAM
     Dosage: 500 MG, 2X/DAY X 3M
  4. CALCIUM CARBONATE\CHOLECALCIFEROL [Concomitant]
     Active Substance: CALCIUM CARBONATE\CHOLECALCIFEROL
     Dosage: 500, 2X/DAY X 3M
  5. D.Rise [Concomitant]
     Dosage: 60K 1/2 X 3 M
  6. EVION [Concomitant]
     Active Substance: .ALPHA.-TOCOPHEROL ACETATE
     Dosage: 400, 2X/DAY X 3M
  7. TORSEMIDE [Concomitant]
     Active Substance: TORSEMIDE
     Dosage: 5MG (ILLEGIBLE)
  8. DENOSUMAB [Concomitant]
     Active Substance: DENOSUMAB
     Dosage: 125 MG
     Route: 058
  9. DENOSUMAB [Concomitant]
     Active Substance: DENOSUMAB
     Dosage: 120 MG 1/6 M X 3M
     Route: 058
  10. ACETYLCYSTEINE [Concomitant]
     Active Substance: ACETYLCYSTEINE
     Dosage: 600, 2X/DAY X 3M

REACTIONS (7)
  - Necrosis [Unknown]
  - Neoplasm progression [Unknown]
  - Blood calcium decreased [Unknown]
  - Vitamin D decreased [Unknown]
  - Pleural effusion [Unknown]
  - COVID-19 [Unknown]
  - Weight decreased [Unknown]

NARRATIVE: CASE EVENT DATE: 20180401
